FAERS Safety Report 8515338-6 (Version None)
Quarter: 2012Q2

REPORT INFORMATION
  Report Type: 
  Country: None (occurrence: None)
  Receive Date: 20120406
  Receipt Date: 20090204
  Transmission Date: 20120825
  Serious: Yes (Hospitalization)
  Sender: FDA-Public Use
  Company Number: PHEH2009US01444

PATIENT
  Age: 36 Year
  Sex: Female
  Weight: 106.6 kg

DRUGS (3)
  1. TASIGNA [Suspect]
     Indication: CHRONIC MYELOID LEUKAEMIA
     Dosage: 400 MG, BID, ORAL
     Route: 048
     Dates: start: 20090130, end: 20090202
  2. MOTRIN [Concomitant]
  3. ACETAMINOPHEN [Concomitant]

REACTIONS (4)
  - NAUSEA [None]
  - HEADACHE [None]
  - VOMITING [None]
  - ABDOMINAL PAIN UPPER [None]
